FAERS Safety Report 4428338-2 (Version None)
Quarter: 2004Q3

REPORT INFORMATION
  Report Type: 
  Country: None (occurrence: None)
  Receive Date: 20040818
  Receipt Date: 20040810
  Transmission Date: 20050211
  Serious: Yes (Hospitalization)
  Sender: FDA-Public Use
  Company Number: FR-JNJFOC-20040803017

PATIENT
  Age: 65 Year
  Sex: Male
  Weight: 63 kg

DRUGS (15)
  1. REMICADE [Suspect]
     Dosage: 4TH INFUSION
     Route: 042
  2. REMICADE [Suspect]
     Dosage: 3RD INFUSION
     Route: 042
  3. REMICADE [Suspect]
     Indication: RHEUMATOID ARTHRITIS
     Dosage: 1ST INFUSION
     Route: 042
  4. ENBREL [Suspect]
     Indication: RHEUMATOID ARTHRITIS
     Route: 058
     Dates: start: 20000316, end: 20000622
  5. ARAVA [Suspect]
     Indication: RHEUMATOID ARTHRITIS
     Route: 049
  6. COZAAR [Suspect]
     Indication: DRUG USE FOR UNKNOWN INDICATION
     Route: 049
  7. CHLORAMINOPHENE [Suspect]
     Indication: DRUG USE FOR UNKNOWN INDICATION
     Route: 049
  8. NOVATREX [Suspect]
     Indication: RHEUMATOID ARTHRITIS
     Route: 049
     Dates: start: 20000615, end: 20010101
  9. TOPALGIC [Concomitant]
  10. OMEPRAZOLE [Concomitant]
  11. PREDNISONE TAB [Concomitant]
     Dosage: 9-15MG/DAY
  12. BISOPROLOL FUMARATE [Concomitant]
  13. LASIX [Concomitant]
  14. ASPIRIN [Concomitant]
  15. PRAVASTATIN [Concomitant]

REACTIONS (6)
  - BACK PAIN [None]
  - DIARRHOEA [None]
  - EPIDURITIS [None]
  - ILEUS [None]
  - OESOPHAGEAL ULCER [None]
  - T-CELL LYMPHOMA [None]
